FAERS Safety Report 17159404 (Version 1)
Quarter: 2019Q4

REPORT INFORMATION
  Report Type: Spontaneous
  Country: GB (occurrence: GB)
  Receive Date: 20191216
  Receipt Date: 20191216
  Transmission Date: 20200122
  Serious: Yes (Other)
  Sender: FDA-Public Use
  Company Number: GB-PFIZER INC-2019536614

PATIENT
  Age: 38 Year
  Sex: Female
  Weight: 74.83 kg

DRUGS (2)
  1. DEPO-PROVERA [Suspect]
     Active Substance: MEDROXYPROGESTERONE ACETATE
     Dosage: 1 DF, EVERY 3 MONTHS
     Route: 051
     Dates: start: 20080101, end: 20191104
  2. ATENOLOL. [Concomitant]
     Active Substance: ATENOLOL
     Dosage: UNK

REACTIONS (2)
  - Crying [Unknown]
  - Depression suicidal [Recovering/Resolving]

NARRATIVE: CASE EVENT DATE: 20180101
